FAERS Safety Report 11822956 (Version 1)
Quarter: 2015Q4

REPORT INFORMATION
  Report Type: Spontaneous
  Country: US (occurrence: US)
  Receive Date: 20151210
  Receipt Date: 20151210
  Transmission Date: 20160305
  Serious: Yes (Other)
  Sender: FDA-Public Use
  Company Number: PHHY2015US160036

PATIENT
  Age: 32 Year
  Sex: Male

DRUGS (4)
  1. PAZOPANIB [Suspect]
     Active Substance: PAZOPANIB
     Indication: CLEAR CELL RENAL CELL CARCINOMA
     Route: 065
     Dates: start: 201111
  2. BEVACIZUMAB [Suspect]
     Active Substance: BEVACIZUMAB
     Indication: CLEAR CELL RENAL CELL CARCINOMA
     Route: 065
  3. EVEROLIMUS [Suspect]
     Active Substance: EVEROLIMUS
     Indication: CLEAR CELL RENAL CELL CARCINOMA
     Route: 065
  4. INTERLEUKIN-2 [Suspect]
     Active Substance: ALDESLEUKIN
     Indication: CLEAR CELL RENAL CELL CARCINOMA
     Route: 065

REACTIONS (4)
  - Malignant neoplasm progression [Unknown]
  - Drug ineffective [Unknown]
  - Toxicity to various agents [Unknown]
  - Clear cell renal cell carcinoma [Unknown]
